FAERS Safety Report 7018531-7 (Version None)
Quarter: 2010Q3

REPORT INFORMATION
  Report Type: 
  Country: None (occurrence: None)
  Receive Date: 20100922
  Receipt Date: 20100910
  Transmission Date: 20110219
  Serious: Yes (Life-Threatening, Hospitalization, Other)
  Sender: FDA-Public Use
  Company Number: 2010-3159

PATIENT
  Age: 48 Year
  Sex: Male

DRUGS (3)
  1. APO-GO PEN(APO-GO) (APOMORPHINE HYDROCHLORIDE) (APOMORPHINE HYDROCHLOR [Suspect]
     Indication: PARKINSON'S DISEASE
     Dosage: 40 MG (4 MG, 10 IN 1 D), SUBCUTANEOUS
     Route: 058
     Dates: start: 20100714, end: 20100816
  2. MADOPAR (MADOPAR /00349201/) [Concomitant]
  3. REQUIP [Concomitant]

REACTIONS (5)
  - BLOOD CREATINE PHOSPHOKINASE INCREASED [None]
  - COMA [None]
  - DYSKINESIA [None]
  - HYPERTONIA [None]
  - PYREXIA [None]
